FAERS Safety Report 14113842 (Version 1)
Quarter: 2017Q4

REPORT INFORMATION
  Report Type: Report from Study
  Country: AR (occurrence: AR)
  Receive Date: 20171023
  Receipt Date: 20171023
  Transmission Date: 20180321
  Serious: Yes (Death, Other)
  Sender: FDA-Public Use
  Company Number: AR-BRISTOL-MYERS SQUIBB COMPANY-BMS-2017-094500

PATIENT
  Age: 75 Year
  Sex: Female

DRUGS (1)
  1. IPILIMUMAB [Suspect]
     Active Substance: IPILIMUMAB
     Indication: MALIGNANT MELANOMA
     Dosage: 50 MG, Q3WK
     Route: 065
     Dates: start: 20170818

REACTIONS (1)
  - Death [Fatal]

NARRATIVE: CASE EVENT DATE: 20171018
